FAERS Safety Report 8620294 (Version 3)
Quarter: 2012Q4

REPORT INFORMATION
  Report Type: 
  Country: ES (occurrence: ES)
  Receive Date: 20120618
  Receipt Date: 20120925
  Transmission Date: 20130627
  Serious: Yes (Other)
  Sender: FDA-Public Use
  Company Number: ES-ROCHE-1077961

PATIENT
  Age: 65 Year
  Sex: Male

DRUGS (6)
  1. RITUXIMAB [Suspect]
     Indication: MANTLE CELL LYMPHOMA
     Route: 042
     Dates: start: 20111212, end: 20120418
  2. CYCLOPHOSPHAMIDE [Concomitant]
     Indication: MANTLE CELL LYMPHOMA
     Route: 042
     Dates: start: 20111212, end: 20120521
  3. DOXORUBICIN [Concomitant]
     Indication: MANTLE CELL LYMPHOMA
     Route: 042
     Dates: start: 20111212, end: 20120521
  4. VINCRISTINE [Concomitant]
     Indication: MANTLE CELL LYMPHOMA
     Route: 042
     Dates: start: 20111212, end: 20120521
  5. PREDNISOLONE [Concomitant]
     Indication: MANTLE CELL LYMPHOMA
     Route: 048
     Dates: start: 20111212, end: 20120606
  6. SEPTRIN FORTE [Concomitant]
     Indication: INFECTION PROPHYLAXIS
     Route: 048
     Dates: start: 20110710

REACTIONS (1)
  - Haemolytic anaemia [Recovered/Resolved]
